FAERS Safety Report 24936616 (Version 1)
Quarter: 2025Q1

REPORT INFORMATION
  Report Type: Spontaneous
  Country: US (occurrence: None)
  Receive Date: 20250205
  Receipt Date: 20250205
  Transmission Date: 20250409
  Serious: Yes (Other)
  Sender: FDA-CTU
  Company Number: None

PATIENT
  Age: 68 Year
  Sex: Male
  Weight: 122.47 kg

DRUGS (4)
  1. XARELTO [Suspect]
     Active Substance: RIVAROXABAN
     Indication: Atrial fibrillation
     Dosage: FREQUENCY : AT BEDTIME;?
     Route: 048
     Dates: start: 20240101, end: 20250129
  2. DEVICE [Concomitant]
     Active Substance: DEVICE
  3. 2 statins [Concomitant]
  4. METOPROLOL [Concomitant]
     Active Substance: METOPROLOL

REACTIONS (6)
  - Increased tendency to bruise [None]
  - Skin laceration [None]
  - Balance disorder [None]
  - Fall [None]
  - Procedural complication [None]
  - Wound [None]

NARRATIVE: CASE EVENT DATE: 20250122
